FAERS Safety Report 21404397 (Version 2)
Quarter: 2022Q4

REPORT INFORMATION
  Report Type: Spontaneous
  Country: PT (occurrence: PT)
  Receive Date: 20221003
  Receipt Date: 20221128
  Transmission Date: 20230113
  Serious: Yes (Death, Other)
  Sender: FDA-Public Use
  Company Number: PT-GILEAD-2022-0599980

PATIENT
  Age: 51 Year
  Sex: Male

DRUGS (1)
  1. BIKTARVY [Suspect]
     Active Substance: BICTEGRAVIR SODIUM\EMTRICITABINE\TENOFOVIR ALAFENAMIDE FUMARATE
     Indication: Product used for unknown indication
     Dosage: UNK
     Route: 065
     Dates: start: 20210729

REACTIONS (9)
  - Cardiac disorder [Fatal]
  - Dyspnoea [Unknown]
  - Oedema peripheral [Unknown]
  - Ill-defined disorder [Unknown]
  - Respiratory failure [Unknown]
  - Cardiac failure [Unknown]
  - General physical health deterioration [Unknown]
  - Cardiac failure [Unknown]
  - Cardiac failure [Unknown]

NARRATIVE: CASE EVENT DATE: 20220101
